FAERS Safety Report 22599741 (Version 4)
Quarter: 2024Q2

REPORT INFORMATION
  Report Type: Spontaneous
  Country: FR (occurrence: FR)
  Receive Date: 20230614
  Receipt Date: 20240429
  Transmission Date: 20240716
  Serious: Yes (Hospitalization)
  Sender: FDA-Public Use
  Company Number: FR-002147023-NVSC2023FR133240

PATIENT
  Age: 44 Year
  Sex: Female
  Weight: 54 kg

DRUGS (9)
  1. KISQALI [Suspect]
     Active Substance: RIBOCICLIB
     Indication: Hypokalaemia
     Dosage: 200 MG, TID (3 TABLETS DAILY)
     Route: 048
     Dates: start: 20230417, end: 20230509
  2. KISQALI [Suspect]
     Active Substance: RIBOCICLIB
     Indication: Invasive lobular breast carcinoma
     Dosage: 600 MG (3 SEMAINES/4)
     Route: 048
     Dates: start: 20230417, end: 20230427
  3. LETROZOLE [Concomitant]
     Active Substance: LETROZOLE
     Indication: Product used for unknown indication
     Dosage: 2.5 MG, QD (MORNING)
     Route: 065
     Dates: start: 20230417
  4. GOSERELIN [Concomitant]
     Active Substance: GOSERELIN
     Indication: Product used for unknown indication
     Dosage: 3.6 MG (EVERY 28 DAYS)
     Route: 065
     Dates: start: 20230417
  5. ACETAMINOPHEN [Concomitant]
     Active Substance: ACETAMINOPHEN
     Indication: Product used for unknown indication
     Dosage: UNK
     Route: 065
  6. PANTOPRAZOLE [Concomitant]
     Active Substance: PANTOPRAZOLE
     Indication: Product used for unknown indication
     Dosage: 40 MG, QD
     Route: 065
  7. GAVISCON [Concomitant]
     Active Substance: ALUMINUM HYDROXIDE\MAGNESIUM CARBONATE
     Indication: Product used for unknown indication
     Dosage: UNK
     Route: 065
  8. SPASFON [Concomitant]
     Indication: Product used for unknown indication
     Dosage: UNK
     Route: 065
  9. SODIUM BICARBONATE [Concomitant]
     Active Substance: SODIUM BICARBONATE
     Indication: Product used for unknown indication
     Dosage: UNK
     Route: 065

REACTIONS (12)
  - Nausea [Recovered/Resolved]
  - Vomiting [Unknown]
  - Pain [Unknown]
  - Abdominal pain [Recovering/Resolving]
  - General physical health deterioration [Unknown]
  - Hypokalaemia [Recovered/Resolved]
  - Vomiting [Recovered/Resolved]
  - Agranulocytosis [Recovered/Resolved]
  - Leukopenia [Not Recovered/Not Resolved]
  - Neutropenia [Unknown]
  - Urine potassium increased [Unknown]
  - Product use in unapproved indication [Unknown]

NARRATIVE: CASE EVENT DATE: 20230417
